FAERS Safety Report 6177153-0 (Version None)
Quarter: 2009Q2

REPORT INFORMATION
  Report Type: 
  Country: None (occurrence: None)
  Receive Date: 20090504
  Receipt Date: 20090424
  Transmission Date: 20091009
  Serious: Yes (Other)
  Sender: FDA-Public Use
  Company Number: FR-PFIZER INC-2009203613

PATIENT

DRUGS (5)
  1. VORICONAZOLE [Suspect]
     Indication: BRONCHOPULMONARY ASPERGILLOSIS
     Dosage: 4 MG/KG, 2X/DAY
     Route: 042
     Dates: start: 20090420, end: 20090424
  2. BLINDED *PLACEBO [Suspect]
     Indication: SYSTEMIC CANDIDA
     Dosage: UNK
     Route: 042
     Dates: start: 20090420, end: 20090424
  3. BLINDED ANIDULAFUNGIN [Suspect]
     Indication: SYSTEMIC CANDIDA
     Dosage: UNK
     Route: 042
     Dates: start: 20090420, end: 20090424
  4. METHADONE [Concomitant]
     Indication: DRUG DEPENDENCE
     Dosage: UNK
     Dates: end: 20090425
  5. NEXIUM [Concomitant]
     Indication: PROPHYLAXIS
     Dosage: UNK
     Dates: end: 20090401

REACTIONS (1)
  - EXTRASYSTOLES [None]
